FAERS Safety Report 15417766 (Version 1)
Quarter: 2018Q3

REPORT INFORMATION
  Report Type: Spontaneous
  Country: US (occurrence: US)
  Receive Date: 20180924
  Receipt Date: 20180924
  Transmission Date: 20181010
  Serious: Yes (Other)
  Sender: FDA-Public Use
  Company Number: US-BAYER-2018-175929

PATIENT

DRUGS (1)
  1. XOFIGO [Suspect]
     Active Substance: RADIUM RA-223 DICHLORIDE
     Dosage: COMPLETED 6 INFUSIONS

REACTIONS (3)
  - Osteosclerosis [None]
  - Bone scan abnormal [None]
  - Therapeutic response unexpected [None]
